FAERS Safety Report 22273648 (Version 2)
Quarter: 2023Q2

REPORT INFORMATION
  Report Type: Spontaneous
  Country: IN (occurrence: IN)
  Receive Date: 20230502
  Receipt Date: 20230605
  Transmission Date: 20230722
  Serious: Yes (Other)
  Sender: FDA-Public Use
  Company Number: IN-PFIZER INC-PV202300077324

PATIENT
  Age: 46 Year
  Sex: Female

DRUGS (15)
  1. PALBOCICLIB [Suspect]
     Active Substance: PALBOCICLIB
     Dosage: UNK
     Dates: start: 20220628
  2. PALBOCICLIB [Suspect]
     Active Substance: PALBOCICLIB
     Dosage: 125 MG, CYCLIC (ONCE A DAY 21 DAYS THEN 1 WEEK OFF 3 MONTH)
     Route: 048
  3. LETROZOLE [Concomitant]
     Active Substance: LETROZOLE
     Dosage: UNK
     Dates: start: 20220628
  4. LETROZOLE [Concomitant]
     Active Substance: LETROZOLE
     Dosage: 2.5 MG, 1X/DAY
  5. TRIPTORELIN PAMOATE [Concomitant]
     Active Substance: TRIPTORELIN PAMOATE
     Dosage: UNK
     Dates: start: 20220627
  6. TRIPTORELIN PAMOATE [Concomitant]
     Active Substance: TRIPTORELIN PAMOATE
     Dosage: 11.25 MG
     Dates: start: 20230302, end: 20230302
  7. ZOLEDAC [Concomitant]
     Dosage: UNK
     Dates: start: 20220627
  8. ZOLEDAC [Concomitant]
     Dosage: 4 MG IN 100 ML NS IV OVER 30 MIN
     Route: 042
  9. CHOLECALCIFEROL [Concomitant]
     Active Substance: CHOLECALCIFEROL
     Dosage: 6 LKAH IM STAT
     Route: 030
  10. DOMPERIDONE\PANTOPRAZOLE SODIUM [Concomitant]
     Active Substance: DOMPERIDONE\PANTOPRAZOLE SODIUM
     Dosage: UNK, 1X/DAY
  11. RPO [Concomitant]
     Dosage: 10 TWICE A DAY 2 MONTHS
  12. CORALIUM D3 [Concomitant]
     Dosage: UNK, 1X/DAY
  13. MECOBALAMIN/PREGABALIN [Concomitant]
     Dosage: HS 2MONTHS
  14. SMUTH L [Concomitant]
     Indication: Constipation
     Dosage: 4TSF AT BED TIME
  15. ULTRACET [Concomitant]
     Active Substance: ACETAMINOPHEN\TRAMADOL HYDROCHLORIDE
     Indication: Pain
     Dosage: 1 TAB SOS

REACTIONS (7)
  - Syncope [Unknown]
  - Back pain [Unknown]
  - Vomiting [Unknown]
  - Diarrhoea [Unknown]
  - Dehydration [Unknown]
  - Hypotension [Unknown]
  - Heart rate increased [Unknown]
